FAERS Safety Report 8844074 (Version 2)
Quarter: 2012Q4

REPORT INFORMATION
  Report Type: 
  Country: US (occurrence: US)
  Receive Date: 20121016
  Receipt Date: 20121031
  Transmission Date: 20130627
  Serious: Yes (Other)
  Sender: FDA-Public Use
  Company Number: US-JNJFOC-20121006293

PATIENT
  Age: 25 Year
  Sex: Female
  Weight: 119 kg

DRUGS (3)
  1. NUCYNTA [Suspect]
     Indication: BACK PAIN
     Dosage: twice a day
     Route: 048
     Dates: start: 20120730, end: 20120801
  2. VICODIN [Concomitant]
     Indication: PAIN
     Dosage: 5/352
     Route: 065
     Dates: start: 20120717, end: 20120730
  3. BACLOFEN [Concomitant]
     Indication: PAIN
     Route: 065
     Dates: start: 20120717, end: 20120730

REACTIONS (1)
  - Paralysis [Recovered/Resolved]
